FAERS Safety Report 7118258-7 (Version None)
Quarter: 2010Q4

REPORT INFORMATION
  Report Type: 
  Country: None (occurrence: None)
  Receive Date: 20101123
  Receipt Date: 20101111
  Transmission Date: 20110411
  Serious: Yes (Hospitalization, Other)
  Sender: FDA-Public Use
  Company Number: JP-JNJFOC-20101104377

PATIENT
  Age: 71 Year
  Sex: Male

DRUGS (2)
  1. LEUSTATIN [Suspect]
     Indication: MANTLE CELL LYMPHOMA
     Route: 041
  2. FLUDARABINE [Suspect]
     Indication: MANTLE CELL LYMPHOMA
     Route: 048

REACTIONS (2)
  - ADENOVIRAL HAEMORRHAGIC CYSTITIS [None]
  - PANCYTOPENIA [None]
